FAERS Safety Report 9523069 (Version 1)
Quarter: 2013Q3

REPORT INFORMATION
  Report Type: Spontaneous
  Country: US (occurrence: US)
  Receive Date: 20130913
  Receipt Date: 20130913
  Transmission Date: 20140515
  Serious: No
  Sender: FDA-Public Use
  Company Number: US-PFIZER INC-2013262328

PATIENT
  Age: 87 Year
  Sex: 0

DRUGS (2)
  1. TOVIAZ [Suspect]
     Dosage: 8 MG, 1X/DAY
  2. TOVIAZ [Suspect]
     Dosage: 12 MG, A DAY

REACTIONS (2)
  - Drug ineffective [Unknown]
  - Crying [Unknown]
